FAERS Safety Report 9423616 (Version 2)
Quarter: 2013Q3

REPORT INFORMATION
  Report Type: Spontaneous
  Country: US (occurrence: US)
  Receive Date: 20130726
  Receipt Date: 20130826
  Transmission Date: 20140515
  Serious: Yes (Hospitalization)
  Sender: FDA-Public Use
  Company Number: US-ABBOTT-13P-163-1121346-00

PATIENT
  Age: 69 Year
  Sex: Female

DRUGS (1)
  1. HUMIRA [Suspect]
     Indication: CROHN^S DISEASE
     Dates: start: 20130619, end: 20130703

REACTIONS (14)
  - Asthenia [Not Recovered/Not Resolved]
  - Rash generalised [Not Recovered/Not Resolved]
  - Abasia [Not Recovered/Not Resolved]
  - Hypophagia [Recovering/Resolving]
  - Confusional state [Not Recovered/Not Resolved]
  - Pain [Not Recovered/Not Resolved]
  - Blood pressure increased [Recovered/Resolved]
  - Asthenia [Recovered/Resolved]
  - Gastrooesophageal reflux disease [Recovered/Resolved]
  - Dyspepsia [Recovered/Resolved]
  - Hypertension [Not Recovered/Not Resolved]
  - Dizziness [Not Recovered/Not Resolved]
  - Pain of skin [Not Recovered/Not Resolved]
  - Skin exfoliation [Not Recovered/Not Resolved]
